FAERS Safety Report 13333460 (Version 1)
Quarter: 2017Q1

REPORT INFORMATION
  Report Type: Spontaneous
  Country: US (occurrence: US)
  Receive Date: 20170314
  Receipt Date: 20170314
  Transmission Date: 20170428
  Serious: No
  Sender: FDA-Public Use
  Company Number: US-TEVA-738733USA

PATIENT
  Sex: Female
  Weight: 94 kg

DRUGS (1)
  1. ENOXAPARIN [Suspect]
     Active Substance: ENOXAPARIN
     Route: 065
     Dates: start: 2017

REACTIONS (6)
  - Decreased appetite [Unknown]
  - Gait disturbance [Unknown]
  - Dyspepsia [Unknown]
  - Gluten sensitivity [Unknown]
  - Joint swelling [Unknown]
  - Fatigue [Unknown]

NARRATIVE: CASE EVENT DATE: 2017
